FAERS Safety Report 20678048 (Version 1)
Quarter: 2022Q2

REPORT INFORMATION
  Report Type: Spontaneous
  Country: US (occurrence: US)
  Receive Date: 20220406
  Receipt Date: 20220406
  Transmission Date: 20220721
  Serious: No
  Sender: FDA-Public Use
  Company Number: US-ORGANON-O2203USA002063

PATIENT
  Sex: Female
  Weight: 70.76 kg

DRUGS (6)
  1. ZOCOR [Suspect]
     Active Substance: SIMVASTATIN
     Dosage: UNK
  2. ATORVASTATIN [Suspect]
     Active Substance: ATORVASTATIN
     Indication: Blood cholesterol
     Dosage: UNK UNK, QD (THE LOWEST DOSE, ONCE DAILY. STATES SHE ONLY TOOK 1-2 PILLS, BUT PROBABLY ONLY ONE)
  3. ATORVASTATIN [Suspect]
     Active Substance: ATORVASTATIN
     Indication: Blood triglycerides
  4. CRESTOR [Suspect]
     Active Substance: ROSUVASTATIN CALCIUM
     Dosage: UNK
  5. LIPITOR [Suspect]
     Active Substance: ATORVASTATIN CALCIUM
     Indication: Blood cholesterol
     Dosage: UNK
  6. LIPITOR [Suspect]
     Active Substance: ATORVASTATIN CALCIUM
     Indication: Blood triglycerides

REACTIONS (4)
  - Throat tightness [Unknown]
  - Swollen tongue [Unknown]
  - Urticaria [Unknown]
  - Pruritus [Unknown]
